FAERS Safety Report 19128768 (Version 1)
Quarter: 2021Q2

REPORT INFORMATION
  Report Type: Spontaneous
  Country: US (occurrence: US)
  Receive Date: 20210413
  Receipt Date: 20210413
  Transmission Date: 20210717
  Serious: No
  Sender: FDA-Public Use
  Company Number: US-ALLERGAN-2102818US

PATIENT
  Sex: Female

DRUGS (2)
  1. BIMATOPROST UNK [Suspect]
     Active Substance: BIMATOPROST
     Indication: GLAUCOMA
  2. BIMATOPROST UNK [Suspect]
     Active Substance: BIMATOPROST
     Indication: INTRAOCULAR PRESSURE TEST ABNORMAL

REACTIONS (1)
  - Myalgia [Unknown]
